FAERS Safety Report 26049492 (Version 2)
Quarter: 2025Q4

REPORT INFORMATION
  Report Type: Spontaneous
  Country: BR (occurrence: BR)
  Receive Date: 20251115
  Receipt Date: 20251212
  Transmission Date: 20260117
  Serious: Yes (Hospitalization)
  Sender: ABBVIE
  Company Number: BR-ABBOTT-2025A-1404041

PATIENT
  Sex: Female
  Weight: 175 kg

DRUGS (3)
  1. DEPAKOTE [Suspect]
     Active Substance: DIVALPROEX SODIUM
     Indication: Bipolar disorder
     Dosage: ONE TABLET DURING 15 DAYS
     Route: 048
     Dates: start: 202510
  2. DEPAKOTE [Suspect]
     Active Substance: DIVALPROEX SODIUM
     Indication: Bipolar disorder
     Dosage: TWO TABLETS AT NIGHT
     Route: 048
  3. ENALAPRIL [Concomitant]
     Active Substance: ENALAPRIL
     Indication: Hypertension
     Dosage: EVERY 12 HOURS

REACTIONS (5)
  - Gallbladder disorder [Unknown]
  - Weight increased [Unknown]
  - Product physical issue [Unknown]
  - Increased appetite [Recovered/Resolved]
  - Product storage error [Unknown]

NARRATIVE: CASE EVENT DATE: 20251001
